FAERS Safety Report 25572476 (Version 2)
Quarter: 2025Q3

REPORT INFORMATION
  Report Type: Spontaneous
  Country: US (occurrence: US)
  Receive Date: 20250717
  Receipt Date: 20250922
  Transmission Date: 20251020
  Serious: No
  Sender: LUPIN
  Company Number: US-LUPIN PHARMACEUTICALS INC.-2025-06055

PATIENT
  Age: 64 Year
  Weight: 83.9 kg

DRUGS (1)
  1. ALBUTEROL SULFATE [Suspect]
     Active Substance: ALBUTEROL SULFATE
     Indication: Cough
     Dosage: 2 PUFFS Q6H

REACTIONS (4)
  - Wrong technique in product usage process [Unknown]
  - Product expiration date issue [Unknown]
  - Product lot number issue [Unknown]
  - Off label use [Unknown]
